FAERS Safety Report 5074749-4 (Version None)
Quarter: 2006Q3

REPORT INFORMATION
  Report Type: 
  Country: None (occurrence: None)
  Receive Date: 20060804
  Receipt Date: 20060726
  Transmission Date: 20061208
  Serious: Yes (Hospitalization)
  Sender: FDA-Public Use
  Company Number: 226364

PATIENT
  Age: 33 Year
  Sex: Female
  Weight: 97.1 kg

DRUGS (11)
  1. RITUXIMAB (RITUXIMAB) CONC FOR SOLUTION FOR INFUSION [Suspect]
     Indication: RHEUMATOID ARTHRITIS
     Dosage: INTRAVENOUS
     Route: 042
     Dates: start: 20060323, end: 20060406
  2. PERCOCET [Concomitant]
  3. VOLTAREN [Concomitant]
  4. FOLIC ACID [Concomitant]
  5. METHOTREXATE [Concomitant]
  6. PREDNISONE TAB [Concomitant]
  7. MORPHINE [Concomitant]
  8. ALBUTEROL (ALBUTEROL/ALBUTEROL SULFATE) [Concomitant]
  9. FLEXERIL [Concomitant]
  10. CYMBALTA [Concomitant]
  11. LYRICA [Concomitant]

REACTIONS (15)
  - BLOOD PRESSURE DIASTOLIC DECREASED [None]
  - C-REACTIVE PROTEIN INCREASED [None]
  - CARDIOMEGALY [None]
  - CHEST PAIN [None]
  - DNA ANTIBODY POSITIVE [None]
  - DYSPNOEA [None]
  - HAEMOGLOBIN DECREASED [None]
  - LYMPHADENOPATHY [None]
  - PAIN [None]
  - PERICARDIAL EFFUSION [None]
  - PERICARDITIS [None]
  - PLATELET COUNT INCREASED [None]
  - PNEUMONIA [None]
  - TACHYCARDIA [None]
  - WHITE BLOOD CELL COUNT INCREASED [None]
